FAERS Safety Report 7081211-6 (Version None)
Quarter: 2010Q4

REPORT INFORMATION
  Report Type: 
  Country: None (occurrence: None)
  Receive Date: 20101102
  Receipt Date: 20101102
  Transmission Date: 20110411
  Serious: Yes (Other)
  Sender: FDA-Public Use
  Company Number: None

PATIENT
  Age: 33 Year
  Sex: Male
  Weight: 72.5755 kg

DRUGS (1)
  1. ZOLPIDEM [Suspect]
     Indication: INSOMNIA
     Dosage: 10 MG NIGHTLY PRN PO PRN
     Route: 048
     Dates: start: 20080101, end: 20101030

REACTIONS (5)
  - ABNORMAL SLEEP-RELATED EVENT [None]
  - AMNESIA [None]
  - SLEEP TALKING [None]
  - SLEEP-RELATED EATING DISORDER [None]
  - SOMNAMBULISM [None]
